FAERS Safety Report 5811404-4 (Version None)
Quarter: 2008Q3

REPORT INFORMATION
  Report Type: 
  Country: None (occurrence: None)
  Receive Date: 20080714
  Receipt Date: 20080702
  Transmission Date: 20090109
  Serious: Yes (Other)
  Sender: FDA-Public Use
  Company Number: 2008017850

PATIENT

DRUGS (8)
  1. CETIRIZINE HCL [Suspect]
     Indication: ASTHMA
     Dosage: PLACENTAL
     Route: 064
  2. PREDNISOLONE [Suspect]
     Dosage: 5 MG, PLACENTAL
     Route: 064
  3. SALBUTAMOL (SALBUTAMOL) [Suspect]
     Dosage: PLACENTAL
     Route: 064
  4. MONTELUKAST SODIUM [Concomitant]
  5. CROMOGLICATE ^FISONS^ (CROMOGLICATE SODIUM) [Concomitant]
  6. REPROTEROL (REPROTEROL) [Concomitant]
  7. LEVOTHYROXINE SODIUM [Concomitant]
  8. AMOXICILLIN [Concomitant]

REACTIONS (2)
  - HAEMANGIOMA [None]
  - MATERNAL DRUGS AFFECTING FOETUS [None]
